FAERS Safety Report 6743040-X (Version None)
Quarter: 2010Q2

REPORT INFORMATION
  Report Type: 
  Country: None (occurrence: None)
  Receive Date: 20100527
  Receipt Date: 20100519
  Transmission Date: 20101027
  Serious: Yes (Hospitalization)
  Sender: FDA-Public Use
  Company Number: 2009BI027167

PATIENT
  Age: 56 Year
  Sex: Female

DRUGS (4)
  1. TYSABRI [Suspect]
     Indication: MULTIPLE SCLEROSIS
     Route: 042
     Dates: start: 20080918, end: 20090305
  2. TYSABRI [Suspect]
     Route: 042
     Dates: start: 20090827
  3. WELLBUTRIN [Concomitant]
  4. BACLOFEN [Concomitant]

REACTIONS (6)
  - DYSPHONIA [None]
  - DYSPNOEA [None]
  - INFLUENZA [None]
  - MULTIPLE SCLEROSIS RELAPSE [None]
  - PYREXIA [None]
  - TOTAL LUNG CAPACITY DECREASED [None]
